FAERS Safety Report 17686714 (Version 1)
Quarter: 2020Q2

REPORT INFORMATION
  Report Type: Spontaneous
  Country: CA (occurrence: CA)
  Receive Date: 20200421
  Receipt Date: 20200421
  Transmission Date: 20200714
  Serious: Yes (Other)
  Sender: FDA-Public Use
  Company Number: CA-CELLTRION INC.-2019CA026255

PATIENT

DRUGS (8)
  1. INFLECTRA [Suspect]
     Active Substance: INFLIXIMAB-DYYB
     Dosage: 500 MG, EVERY 6 WEEKS
     Route: 042
     Dates: start: 20200306
  2. INFLECTRA [Suspect]
     Active Substance: INFLIXIMAB-DYYB
     Dosage: 500 MG, EVERY 6 WEEKS
     Route: 042
     Dates: start: 20191213
  3. INFLECTRA [Suspect]
     Active Substance: INFLIXIMAB-DYYB
     Dosage: 500 MG, EVERY 6 WEEKS
     Route: 042
     Dates: start: 20200123
  4. ASACOL [Concomitant]
     Active Substance: MESALAMINE
     Dosage: 5 DF, 1X/DAY
  5. PREDNISONE. [Concomitant]
     Active Substance: PREDNISONE
     Dosage: TAPERING
  6. INFLECTRA [Suspect]
     Active Substance: INFLIXIMAB-DYYB
     Indication: COLITIS ULCERATIVE
     Dosage: 500 MG, EVERY 6 WEEKS
     Route: 042
     Dates: start: 20191029
  7. INFLECTRA [Suspect]
     Active Substance: INFLIXIMAB-DYYB
     Dosage: 500 MG, EVERY 6 WEEKS
     Route: 042
     Dates: start: 20200414
  8. IMURAN [Concomitant]
     Active Substance: AZATHIOPRINE
     Dosage: 1 DF, 1X/DAY

REACTIONS (7)
  - Weight decreased [Unknown]
  - Off label use [Unknown]
  - Nausea [Recovered/Resolved]
  - Arthralgia [Unknown]
  - Intentional product use issue [Unknown]
  - Headache [Recovered/Resolved]
  - Condition aggravated [Recovering/Resolving]

NARRATIVE: CASE EVENT DATE: 20191029
